FAERS Safety Report 6262834-0 (Version None)
Quarter: 2009Q3

REPORT INFORMATION
  Report Type: 
  Country: None (occurrence: None)
  Receive Date: 20090708
  Receipt Date: 20090626
  Transmission Date: 20100115
  Serious: Yes (Death)
  Sender: FDA-Public Use
  Company Number: APP200900350

PATIENT
  Sex: Male

DRUGS (9)
  1. HEPARIN SODIUM INJECTION [Suspect]
     Indication: ANTICOAGULANT THERAPY
     Dosage: INTRAVENOUS
     Route: 042
     Dates: start: 20090623, end: 20090623
  2. HEPARIN SODIUM INJECTION [Suspect]
  3. HEPARIN SODIUM INJECTION [Suspect]
  4. HEPARIN SODIUM INJECTION [Suspect]
  5. HEPARIN SODIUM INJECTION [Suspect]
  6. PROTAMINE SULFATE [Suspect]
     Indication: HEPARIN NEUTRALISATION THERAPY
     Dosage: INTRAVENOUS
     Route: 042
     Dates: start: 20090623, end: 20090623
  7. PROTAMINE SULFATE [Suspect]
  8. PROTAMINE SULFATE [Suspect]
  9. PROTAMINE SULFATE [Suspect]

REACTIONS (2)
  - OPERATIVE HAEMORRHAGE [None]
  - PRODUCT MEASURED POTENCY ISSUE [None]
